FAERS Safety Report 24142947 (Version 2)
Quarter: 2024Q3

REPORT INFORMATION
  Report Type: Report from Study
  Country: US (occurrence: US)
  Receive Date: 20240726
  Receipt Date: 20240812
  Transmission Date: 20241016
  Serious: Yes (Life-Threatening, Hospitalization, Other)
  Sender: GILEAD
  Company Number: US-GILEAD-2024-0681607

PATIENT
  Age: 38 Year
  Sex: Female
  Weight: 49.2 kg

DRUGS (2)
  1. SACITUZUMAB GOVITECAN-HZIY [Suspect]
     Active Substance: SACITUZUMAB GOVITECAN-HZIY
     Indication: Breast cancer
     Dosage: 490 MG, CYCLIC (D1, D8, 21 DAY CYCLES)
     Route: 042
     Dates: start: 20240528, end: 20240709
  2. AVELUMAB [Suspect]
     Active Substance: AVELUMAB
     Indication: Breast cancer
     Dosage: 490 MG (10 MG/KG), CYCLIC (EVERY 2 WEEKS)
     Route: 042
     Dates: start: 20240611, end: 20240625

REACTIONS (3)
  - Sepsis [Not Recovered/Not Resolved]
  - Multiple organ dysfunction syndrome [Not Recovered/Not Resolved]
  - Abdominal pain [Not Recovered/Not Resolved]

NARRATIVE: CASE EVENT DATE: 20240715
